FAERS Safety Report 4265869-2 (Version None)
Quarter: 2004Q1

REPORT INFORMATION
  Report Type: 
  Country: None (occurrence: None)
  Receive Date: 20040107
  Receipt Date: 20040107
  Transmission Date: 20041129
  Serious: Yes (Hospitalization)
  Sender: FDA-Public Use
  Company Number: None

PATIENT
  Age: 50 Year
  Sex: Female
  Weight: 69.8539 kg

DRUGS (6)
  1. TAXOTERE [Suspect]
     Indication: NEOPLASM RECURRENCE
     Dosage: 122 MG/Q21 DAYS IV [5 CYCLES]
     Route: 042
     Dates: start: 20030505, end: 20030731
  2. TAXOTERE [Suspect]
     Indication: SMALL CELL CARCINOMA
     Dosage: 122 MG/Q21 DAYS IV [5 CYCLES]
     Route: 042
     Dates: start: 20030505, end: 20030731
  3. DECADRON [Concomitant]
  4. LOVENOX [Concomitant]
  5. VICODIN [Concomitant]
  6. PROCRIT [Concomitant]

REACTIONS (3)
  - DEEP VEIN THROMBOSIS [None]
  - HYPOTENSION [None]
  - MALIGNANT NEOPLASM PROGRESSION [None]
